FAERS Safety Report 6659892-8 (Version None)
Quarter: 2010Q1

REPORT INFORMATION
  Report Type: 
  Country: None (occurrence: None)
  Receive Date: 20100330
  Receipt Date: 20100330
  Transmission Date: 20100710
  Serious: Yes (Other)
  Sender: FDA-Public Use
  Company Number: None

PATIENT
  Sex: Female
  Weight: 77.1115 kg

DRUGS (3)
  1. PEGASYS [Suspect]
     Indication: HEPATITIS C
     Dosage: 180 MCG/0.5 ML PFS WEEKLY SQ
     Route: 058
     Dates: start: 20100302, end: 20100402
  2. RIBAVIRIN [Suspect]
     Indication: HEPATITIS C
     Dosage: 1000MG DAILY PO
     Route: 048
     Dates: start: 20100302, end: 20100402
  3. CLONAZEPAM [Concomitant]

REACTIONS (6)
  - BREAST MASS [None]
  - COUGH [None]
  - ERYTHEMA NODOSUM [None]
  - HEART RATE IRREGULAR [None]
  - INCREASED UPPER AIRWAY SECRETION [None]
  - SARCOIDOSIS [None]
